FAERS Safety Report 9477824 (Version 1)
Quarter: 2013Q3

REPORT INFORMATION
  Report Type: Spontaneous
  Country: US (occurrence: None)
  Receive Date: 20130826
  Receipt Date: 20130826
  Transmission Date: 20140515
  Serious: Yes (Life-Threatening, Hospitalization)
  Sender: FDA-Public Use
  Company Number: None

PATIENT
  Age: 56 Year
  Sex: Female
  Weight: 56.7 kg

DRUGS (5)
  1. ACTONEL (RISEDRONATE SODIUM) TABLETS 150MG [Suspect]
     Indication: OSTEOPOROSIS
     Dosage: STRENGTH:  150 MG?QUANTITY:  2?FREQUENCY:  30-DAY TIME RELEASE?HOW:  MOUTH?
     Route: 048
  2. VITAMIN D [Concomitant]
  3. VITAMIN E [Concomitant]
  4. OMEGA-3 [Concomitant]
  5. CALCIUM [Concomitant]

REACTIONS (4)
  - Influenza like illness [None]
  - Abdominal pain upper [None]
  - Nausea [None]
  - Cardiac failure [None]
